FAERS Safety Report 15578238 (Version 1)
Quarter: 2018Q4

REPORT INFORMATION
  Report Type: Spontaneous
  Country: US (occurrence: US)
  Receive Date: 20181102
  Receipt Date: 20181102
  Transmission Date: 20190205
  Serious: No
  Sender: FDA-Public Use
  Company Number: US-STRIDES ARCOLAB LIMITED-2018SP009272

PATIENT
  Age: 21 Year
  Sex: Female

DRUGS (5)
  1. CALCITRIOL. [Suspect]
     Active Substance: CALCITRIOL
     Indication: HYPERPARATHYROIDISM PRIMARY
     Dosage: 0.25 MCG, BID
     Route: 065
  2. CINACALCET. [Suspect]
     Active Substance: CINACALCET
     Indication: HYPERPARATHYROIDISM PRIMARY
     Dosage: 30 MG, BID
     Route: 065
  3. CALCIUM CARBONATE. [Suspect]
     Active Substance: CALCIUM CARBONATE
     Indication: HYPERPARATHYROIDISM PRIMARY
     Dosage: 2 G DAILY
     Route: 065
  4. CALCIUM GLUCONATE. [Suspect]
     Active Substance: CALCIUM GLUCONATE
     Indication: HYPERPARATHYROIDISM PRIMARY
     Dosage: 2 G, EVERY 6 HRS
     Route: 042
  5. CALCIUM/VITAMIN D                  /01204201/ [Suspect]
     Active Substance: CALCIUM CARBONATE\ERGOCALCIFEROL
     Indication: HYPERPARATHYROIDISM PRIMARY
     Dosage: 2000 MG/ 400 IU DAILY
     Route: 065

REACTIONS (3)
  - Vomiting [Unknown]
  - Nausea [Unknown]
  - Exposure during pregnancy [Unknown]
